FAERS Safety Report 4515129-7 (Version None)
Quarter: 2004Q4

REPORT INFORMATION
  Report Type: 
  Country: None (occurrence: None)
  Receive Date: 20041126
  Receipt Date: 20041117
  Transmission Date: 20050328
  Serious: Yes (Life-Threatening, Hospitalization, Other)
  Sender: FDA-Public Use
  Company Number: GB-JNJFOC-20041105373

PATIENT
  Age: 30 Year
  Sex: Female

DRUGS (4)
  1. IBUPROFEN [Suspect]
  2. TRIMETHOPRIM [Suspect]
  3. VIRUS INFLUENZA (VIRUS INFLUENZA) [Suspect]
  4. CONTRACEPTIVE PILL (ORAL CONTRACEPTIVE NOS) [Concomitant]

REACTIONS (2)
  - HAEMODIALYSIS [None]
  - RENAL FAILURE ACUTE [None]
